FAERS Safety Report 7361899-2 (Version None)
Quarter: 2011Q1

REPORT INFORMATION
  Report Type: 
  Country: None (occurrence: None)
  Receive Date: 20110318
  Receipt Date: 20110304
  Transmission Date: 20110831
  Serious: Yes (Hospitalization)
  Sender: FDA-Public Use
  Company Number: US-PFIZER INC-2011054093

PATIENT
  Age: 40 Year
  Sex: Male

DRUGS (3)
  1. BENICAR [Suspect]
     Indication: HYPERTENSION
     Dosage: UNK
     Route: 048
     Dates: start: 20090101, end: 20100101
  2. BENICAR [Suspect]
     Dosage: UNK
     Route: 048
     Dates: start: 20110226, end: 20110226
  3. DOXYCYCLINE HYCLATE [Suspect]
     Indication: INFECTED BITES
     Dosage: UNK
     Route: 048
     Dates: start: 20110222, end: 20110201

REACTIONS (5)
  - BODY TEMPERATURE INCREASED [None]
  - SWOLLEN TONGUE [None]
  - VISUAL IMPAIRMENT [None]
  - HEART RATE INCREASED [None]
  - URTICARIA [None]
